FAERS Safety Report 18714610 (Version 1)
Quarter: 2021Q1

REPORT INFORMATION
  Report Type: Spontaneous
  Country: BE (occurrence: BE)
  Receive Date: 20210107
  Receipt Date: 20210107
  Transmission Date: 20210419
  Serious: Yes (Other)
  Sender: FDA-Public Use
  Company Number: BE-009507513-2011BEL016617

PATIENT
  Age: 73 Year
  Sex: Male
  Weight: 90 kg

DRUGS (9)
  1. KEYTRUDA [Suspect]
     Active Substance: PEMBROLIZUMAB
     Dosage: 200 MG Q3W
     Route: 042
     Dates: start: 202004
  2. ALIMTA [Suspect]
     Active Substance: PEMETREXED DISODIUM
     Indication: LUNG CANCER METASTATIC
     Dosage: UNK
     Dates: start: 202001, end: 2020
  3. LASIX [Concomitant]
     Active Substance: FUROSEMIDE
     Dosage: 40 MG 1/2 DAY
     Route: 048
     Dates: start: 202003
  4. ALLOPURINOL. [Concomitant]
     Active Substance: ALLOPURINOL
     Dosage: 300 MILLIGRAM, QD
  5. LASIX [Concomitant]
     Active Substance: FUROSEMIDE
     Dosage: 40 MG ONCE DAILY
     Route: 048
     Dates: start: 202002
  6. KEYTRUDA [Suspect]
     Active Substance: PEMBROLIZUMAB
     Indication: LUNG CANCER METASTATIC
     Dosage: 200 MG Q3W
     Dates: start: 201909, end: 202002
  7. DIPYRONE [Concomitant]
     Active Substance: DIPYRONE
     Dosage: 1 GRAM, QID
     Route: 048
  8. CISPLATIN. [Suspect]
     Active Substance: CISPLATIN
     Indication: LUNG CANCER METASTATIC
     Dosage: UNK
     Dates: start: 202001, end: 2020
  9. FOLAVIT [Concomitant]
     Active Substance: FOLIC ACID
     Dosage: 0.4 MILLIGRAM, QD
     Route: 048

REACTIONS (4)
  - Erythema [Recovered/Resolved]
  - Erythema [Recovered/Resolved]
  - Oedema peripheral [Recovered/Resolved]
  - Oedema peripheral [Recovered/Resolved]

NARRATIVE: CASE EVENT DATE: 2020
